FAERS Safety Report 18458543 (Version 1)
Quarter: 2020Q4

REPORT INFORMATION
  Report Type: Spontaneous
  Country: US (occurrence: US)
  Receive Date: 20201103
  Receipt Date: 20201103
  Transmission Date: 20210114
  Serious: No
  Sender: FDA-Public Use
  Company Number: US-PFIZER INC-2020420630

PATIENT
  Age: 40 Year
  Sex: Male
  Weight: 120.2 kg

DRUGS (3)
  1. LITHIUM. [Concomitant]
     Active Substance: LITHIUM
     Indication: AFFECTIVE DISORDER
     Dosage: UNK
  2. PRISTIQ EXTENDED-RELEASE [Suspect]
     Active Substance: DESVENLAFAXINE SUCCINATE
     Indication: DEPRESSION
  3. PRISTIQ EXTENDED-RELEASE [Suspect]
     Active Substance: DESVENLAFAXINE SUCCINATE
     Indication: BIPOLAR DISORDER
     Dosage: 25 MG, 1X/DAY
     Dates: start: 201409, end: 202009

REACTIONS (9)
  - Product use issue [Unknown]
  - Nausea [Unknown]
  - Asthenia [Unknown]
  - Lethargy [Unknown]
  - Withdrawal syndrome [Unknown]
  - Headache [Unknown]
  - Off label use [Unknown]
  - Decreased appetite [Unknown]
  - Impaired work ability [Unknown]

NARRATIVE: CASE EVENT DATE: 2020
